FAERS Safety Report 12591936 (Version 1)
Quarter: 2016Q3

REPORT INFORMATION
  Report Type: Spontaneous
  Country: FR (occurrence: FR)
  Receive Date: 20160726
  Receipt Date: 20160726
  Transmission Date: 20161109
  Serious: Yes (Other)
  Sender: FDA-Public Use
  Company Number: PHHY2016FR101330

PATIENT
  Age: 34 Year
  Sex: Female

DRUGS (1)
  1. RITALINE [Suspect]
     Active Substance: METHYLPHENIDATE HYDROCHLORIDE
     Indication: PRODUCT USED FOR UNKNOWN INDICATION
     Dosage: 84 DF, QD
     Route: 042
     Dates: start: 20160701, end: 20160701

REACTIONS (4)
  - Pruritus [Unknown]
  - Rash [Unknown]
  - Alopecia [Unknown]
  - Tooth loss [Unknown]

NARRATIVE: CASE EVENT DATE: 20160707
